FAERS Safety Report 13181019 (Version 1)
Quarter: 2017Q1

REPORT INFORMATION
  Report Type: Spontaneous
  Country: US (occurrence: US)
  Receive Date: 20170202
  Receipt Date: 20170202
  Transmission Date: 20170428
  Serious: No
  Sender: FDA-Public Use
  Company Number: US-SMITH AND NEPHEW, INC-2015SMT00692

PATIENT
  Age: 71 Year
  Sex: Male
  Weight: 74.83 kg

DRUGS (9)
  1. REGRANEX [Suspect]
     Active Substance: BECAPLERMIN
     Indication: DIABETIC FOOT
     Dosage: UNK UNK, 1X/DAY
     Route: 061
     Dates: start: 201509, end: 201510
  2. COREG [Concomitant]
     Active Substance: CARVEDILOL
     Dosage: UNK, 2X/DAY
  3. ONE-A-DAY NOS [Concomitant]
     Active Substance: MINERALS\VITAMINS
     Dosage: UNK, 1X/DAY
  4. LIPITOR [Concomitant]
     Active Substance: ATORVASTATIN CALCIUM
     Dosage: UNK, 1X/DAY
  5. AVODART [Concomitant]
     Active Substance: DUTASTERIDE
     Dosage: UNK, 1X/DAY
  6. LANTUS [Concomitant]
     Active Substance: INSULIN GLARGINE
     Dosage: 15 U, UP TO 1X/DAY
  7. PLAVIX [Concomitant]
     Active Substance: CLOPIDOGREL BISULFATE
     Dosage: UNK, 1X/DAY
  8. ASPIRIN. [Concomitant]
     Active Substance: ASPIRIN
     Dosage: 325 MG, 1X/DAY
  9. MAGNESIUM [Concomitant]
     Active Substance: MAGNESIUM
     Dosage: UNK, 1X/DAY

REACTIONS (1)
  - Wound complication [Not Recovered/Not Resolved]

NARRATIVE: CASE EVENT DATE: 201509
